FAERS Safety Report 19567919 (Version 1)
Quarter: 2021Q3

REPORT INFORMATION
  Report Type: Report from Study
  Country: US (occurrence: US)
  Receive Date: 20210716
  Receipt Date: 20210716
  Transmission Date: 20211014
  Serious: Yes (Hospitalization, Other)
  Sender: FDA-Public Use
  Company Number: NVSC2021US154872

PATIENT
  Sex: Female

DRUGS (1)
  1. ENTRESTO [Suspect]
     Active Substance: SACUBITRIL\VALSARTAN
     Indication: CARDIAC FAILURE
     Dosage: 50 MG, BID (24/26 MG)
     Route: 051
     Dates: start: 20210407

REACTIONS (6)
  - Loss of consciousness [Recovered/Resolved]
  - Loss of consciousness [Unknown]
  - Fall [Unknown]
  - Injection site haemorrhage [Unknown]
  - Head injury [Unknown]
  - Incorrect route of product administration [Unknown]
